FAERS Safety Report 7543739-1 (Version None)
Quarter: 2011Q2

REPORT INFORMATION
  Report Type: 
  Country: None (occurrence: None)
  Receive Date: 20110613
  Receipt Date: 20040820
  Transmission Date: 20111010
  Serious: Yes (Death, Hospitalization)
  Sender: FDA-Public Use
  Company Number: PHHO2004CO11683

PATIENT
  Sex: Female

DRUGS (3)
  1. DIOVAN HCT [Suspect]
     Indication: HYPERTENSION
     Dosage: 160 MG + 12.5 MG / DAY
     Route: 048
     Dates: start: 20000101
  2. CAPOTEN [Concomitant]
  3. ASPIRIN [Concomitant]

REACTIONS (1)
  - CEREBRAL ISCHAEMIA [None]
